FAERS Safety Report 8021693-6 (Version None)
Quarter: 2012Q1

REPORT INFORMATION
  Report Type: 
  Country: None (occurrence: None)
  Receive Date: 20120104
  Receipt Date: 20120101
  Transmission Date: 20120608
  Serious: Yes (Death)
  Sender: FDA-Public Use
  Company Number: PHHY2012EG000457

PATIENT
  Age: 66 Year
  Sex: Female

DRUGS (1)
  1. EXFORGE [Suspect]
     Indication: HYPERTENSION
     Route: 048

REACTIONS (2)
  - HEPATIC NEOPLASM MALIGNANT [None]
  - HEPATIC CANCER METASTATIC [None]
